FAERS Safety Report 5312883-1 (Version None)
Quarter: 2007Q1

REPORT INFORMATION
  Report Type: 
  Country: None (occurrence: None)
  Receive Date: 20070201
  Receipt Date: 20061219
  Transmission Date: 20070707
  Serious: No
  Sender: FDA-Public Use
  Company Number: 259551

PATIENT
  Age: 58 Year
  Sex: Female
  Weight: 52.2 kg

DRUGS (4)
  1. LEVEMIR [Suspect]
     Indication: DIABETES MELLITUS INSULIN-DEPENDENT
     Dosage: 18 IU,QD,SUBCUTANEOUS
     Route: 058
     Dates: start: 20061001
  2. NOVOLOG [Concomitant]
  3. NOVOFINE 30 (NEEDLE) [Concomitant]
  4. LEVEMIR [Suspect]
     Dosage: 18, SUBCUTANEOUS
     Route: 058
     Dates: start: 20061001

REACTIONS (2)
  - BLOOD GLUCOSE INCREASED [None]
  - VISUAL DISTURBANCE [None]
